FAERS Safety Report 6046232-0 (Version None)
Quarter: 2009Q1

REPORT INFORMATION
  Report Type: 
  Country: None (occurrence: None)
  Receive Date: 20090122
  Receipt Date: 20090116
  Transmission Date: 20090719
  Serious: Yes (Death)
  Sender: FDA-Public Use
  Company Number: DE-BRISTOL-MYERS SQUIBB COMPANY-14476451

PATIENT
  Age: 78 Year
  Sex: Female
  Weight: 85 kg

DRUGS (3)
  1. METFORMIN HCL [Suspect]
     Indication: TYPE 2 DIABETES MELLITUS
     Dosage: 1 DOSAGE FORM = 2000 (UNIT NOT GIVEN)
     Route: 048
  2. AMOXICILLIN [Concomitant]
     Dosage: 1 DOSAGE FORM = 2000 (UNIT NOT GIVEN)
  3. METRONIDAZOLE HCL [Concomitant]
     Indication: GASTRIC ULCER HELICOBACTER
     Dosage: 1 DOSAGE FORM = 800 (UNIT NOT SPECIFIED)
     Route: 048
     Dates: start: 20081120, end: 20081128

REACTIONS (3)
  - LACTIC ACIDOSIS [None]
  - RENAL FAILURE ACUTE [None]
  - RHABDOMYOLYSIS [None]
